FAERS Safety Report 9261431 (Version 1)
Quarter: 2013Q2

REPORT INFORMATION
  Report Type: Spontaneous
  Country: US (occurrence: US)
  Receive Date: 20130429
  Receipt Date: 20130429
  Transmission Date: 20140414
  Serious: Yes (Hospitalization)
  Sender: FDA-Public Use
  Company Number: US-BAYER-2013-051948

PATIENT
  Age: 46 Year
  Sex: Female
  Weight: 61 kg

DRUGS (2)
  1. YAZ [Suspect]
  2. ADVIL [Concomitant]
     Dosage: 200 MG, EVERY 6 HOURS AS NEEDED
     Route: 048

REACTIONS (1)
  - Deep vein thrombosis [None]
